FAERS Safety Report 8431277-3 (Version None)
Quarter: 2012Q2

REPORT INFORMATION
  Report Type: 
  Country: None (occurrence: None)
  Receive Date: 20120613
  Receipt Date: 20120605
  Transmission Date: 20120825
  Serious: Yes (Hospitalization)
  Sender: FDA-Public Use
  Company Number: US-BIOGENIDEC-2012BI011823

PATIENT
  Age: 60 Year
  Sex: Male

DRUGS (10)
  1. TRIAMCINOLONE ACETONIDE [Concomitant]
     Route: 061
  2. CYMBALTA [Concomitant]
     Route: 048
  3. SIMVASTATIN [Concomitant]
     Route: 048
  4. ERGOCALCIFEROL [Concomitant]
     Route: 048
  5. TYSABRI [Suspect]
     Indication: MULTIPLE SCLEROSIS
     Route: 042
     Dates: start: 20080122
  6. KLONOPIN [Concomitant]
     Route: 048
  7. OMEPRAZOLE [Concomitant]
     Route: 048
  8. BACLOFEN [Concomitant]
     Route: 048
  9. VALACYCLOVIR HYDROCHLORIDE [Concomitant]
     Route: 048
  10. VIIBRYD [Concomitant]
     Route: 048

REACTIONS (4)
  - HIP FRACTURE [None]
  - CONTUSION [None]
  - JOINT EFFUSION [None]
  - FALL [None]
